FAERS Safety Report 8320288-4 (Version None)
Quarter: 2012Q2

REPORT INFORMATION
  Report Type: 
  Country: None (occurrence: None)
  Receive Date: 20120430
  Receipt Date: 20120423
  Transmission Date: 20120825
  Serious: Yes (Hospitalization, Other)
  Sender: FDA-Public Use
  Company Number: US-BAYER-2011-107463

PATIENT
  Sex: Female
  Weight: 45.351 kg

DRUGS (36)
  1. ZANTAC [Concomitant]
     Indication: ABDOMINAL PAIN UPPER
  2. HYDROCODONE BITARTRATE AND ACETAMINOPHEN [Concomitant]
     Indication: PAIN
     Dosage: 5 MG/500MG, 1 OR 2 TABLETS Q4HR TO 6 HOURS PRN
     Route: 048
     Dates: start: 20050520
  3. HYDROCODONE BITARTRATE AND ACETAMINOPHEN [Concomitant]
     Dosage: 5 MG/500MG, 1 OR 2 TABLETS Q4HR TO 6 HOURS PRN
     Route: 048
     Dates: start: 20060120
  4. Q-DRYL/LIDO VISC/KENALOG [Concomitant]
     Indication: OROPHARYNGEAL PAIN
     Dosage: EVERY 2 HOURS PRN
     Route: 048
     Dates: start: 20050102
  5. DICYCLOMINE [Concomitant]
     Dosage: 10 MG, QID
     Route: 048
     Dates: start: 20050607
  6. CLARITHROMYCIN [Concomitant]
     Dosage: 500 MG, BID
     Route: 048
     Dates: start: 20050815
  7. FLUCONAZOLE [Concomitant]
     Dosage: 200 MG, QD
     Dates: start: 20070305, end: 20070305
  8. H-C TUSSIVE [Concomitant]
     Dosage: UNK
     Route: 048
     Dates: start: 20061107
  9. YASMIN [Suspect]
     Indication: CONTRACEPTION
     Dosage: UNK
     Route: 048
     Dates: start: 20040101, end: 20080611
  10. PROAIR HFA [Concomitant]
     Dosage: 2 PUFF(S), Q4HR PRN
     Route: 055
     Dates: start: 20071107
  11. ZITHROMAX [Concomitant]
     Dosage: 250 MG, QD
     Route: 048
     Dates: start: 20071002
  12. BELLADONA/ANTACID M/DIPHEN AF [Concomitant]
     Dosage: UNK
     Route: 048
     Dates: start: 20050621
  13. AMITRIPTYLINE HCL [Concomitant]
     Dosage: 10 MG, HS
     Route: 048
     Dates: start: 20050601
  14. OXYCODONE HCL AND ACETAMINOPHEN [Concomitant]
     Indication: PAIN
     Dosage: 5MG/325MG, Q4HS PRN
     Route: 048
     Dates: start: 20051017
  15. ZITHROMAX [Concomitant]
     Dosage: 250 MG, QD
     Route: 048
     Dates: start: 20050103
  16. AMPICILLIN [Concomitant]
     Dosage: 500 MG, QID
     Route: 048
     Dates: start: 20050815
  17. FLUCONAZOLE [Concomitant]
     Dosage: 150 MG, UNK
     Route: 048
     Dates: start: 20070907
  18. TRANSDERM SCOP [Concomitant]
     Dosage: 1 PATCH EVERY 3 DAYS
     Dates: start: 20060913
  19. PROTONIX [Concomitant]
     Dosage: 40 MG, OM
     Dates: start: 20050815
  20. HYDROCODONE BITARTRATE AND ACETAMINOPHEN [Concomitant]
     Dosage: 7.5/500 MG, 1 OR 2 TABLETS Q4HR TO 6 HOURS PRN
     Route: 048
     Dates: start: 20070517
  21. METHYLPREDNISOLONE [Concomitant]
     Dosage: 4 MG, UNK
     Dates: start: 20060120
  22. METHYLPREDNISOLONE [Concomitant]
     Dosage: 4 MG, UNK
     Dates: start: 20071026
  23. AMDRY-C [Concomitant]
     Dosage: UNK
     Route: 048
     Dates: start: 20050102
  24. HALFLYTELY [BISACODYL,ELECTROLYTES NOS,MACROGOL 3350] [Concomitant]
     Dosage: UNK
     Dates: start: 20050716
  25. AVELOX [Concomitant]
     Dosage: 400 MG, QD
     Route: 048
     Dates: start: 20071026
  26. GABAPENTIN [Concomitant]
     Dosage: 300 MG, HS
     Route: 048
     Dates: start: 20050907
  27. ZITHROMAX [Concomitant]
     Dosage: 500 MG, QD
     Route: 048
     Dates: start: 20050102
  28. FLUCONAZOLE [Concomitant]
     Dosage: 100 MG, QD
     Dates: start: 20070306
  29. CALCIUM CARBONATE [Concomitant]
     Indication: ABDOMINAL PAIN UPPER
  30. ZITHROMAX [Concomitant]
     Dosage: 500 MG, QD
     Route: 048
     Dates: start: 20071001
  31. CYCLOBENZAPRINE [Concomitant]
     Dosage: 10 MG, TID PRN
     Route: 048
     Dates: start: 20050829
  32. TUSSIONEX [Concomitant]
     Dosage: 1 TEA EVERY 12 HOURS
  33. XOPENEX [Concomitant]
  34. ROLAIDS [Concomitant]
     Indication: ABDOMINAL PAIN UPPER
  35. GABAPENTIN [Concomitant]
     Dosage: 600 MG, HS
     Dates: start: 20050914
  36. AMOXICILLIN [Concomitant]
     Dosage: 500 MG, EVERY 8 HOURS
     Route: 048
     Dates: start: 20060120

REACTIONS (3)
  - BILIARY DYSKINESIA [None]
  - PAIN [None]
  - GALLBLADDER DISORDER [None]
